FAERS Safety Report 17412420 (Version 1)
Quarter: 2020Q1

REPORT INFORMATION
  Report Type: Spontaneous
  Country: US (occurrence: US)
  Receive Date: 20200213
  Receipt Date: 20200213
  Transmission Date: 20200409
  Serious: No
  Sender: FDA-Public Use
  Company Number: US-GLENMARK PHARMACEUTICALS-2019GMK045122

PATIENT

DRUGS (4)
  1. RANITIDINE TABLETS USP, 150 MG [Suspect]
     Active Substance: RANITIDINE HYDROCHLORIDE
     Indication: GASTROOESOPHAGEAL REFLUX DISEASE
     Dosage: 150 MG, HS (AT NIGHT) (STOPPED)
     Route: 048
     Dates: start: 20120802, end: 2014
  2. RANITIDINE TABLETS USP, 150 MG [Suspect]
     Active Substance: RANITIDINE HYDROCHLORIDE
     Dosage: 150 MG, HS (AT NIGHT) (RESTARTED IN MONTH OF JUNE)
     Route: 048
     Dates: start: 201906, end: 201910
  3. RANITIDINE TABLETS USP, 150 MG [Suspect]
     Active Substance: RANITIDINE HYDROCHLORIDE
     Dosage: 150 MG, HS (AT NIGHT) (RESTARTED IN MONTH OF JUNE)
     Route: 048
     Dates: start: 201704
  4. LEVOTHYROXINE. [Concomitant]
     Active Substance: LEVOTHYROXINE
     Indication: THYROID DISORDER
     Dosage: 25 MCG, OD
     Route: 065

REACTIONS (3)
  - Vitamin B12 deficiency [Recovering/Resolving]
  - Recalled product administered [Unknown]
  - Alopecia [Recovering/Resolving]
